FAERS Safety Report 6326510-8 (Version None)
Quarter: 2009Q3

REPORT INFORMATION
  Report Type: 
  Country: None (occurrence: None)
  Receive Date: 20090821
  Receipt Date: 20090810
  Transmission Date: 20100115
  Serious: Yes (Other)
  Sender: FDA-Public Use
  Company Number: ADR12782009

PATIENT
  Sex: Female

DRUGS (4)
  1. RANITIDINE [Suspect]
     Indication: GASTROOESOPHAGEAL REFLUX DISEASE
     Dosage: 11 MG BD ORAL
     Route: 048
     Dates: start: 20060120, end: 20060425
  2. DOMPERIDONE [Concomitant]
  3. PARACETAMOL [Concomitant]
  4. GAVISCON [Concomitant]

REACTIONS (1)
  - LIVER FUNCTION TEST ABNORMAL [None]
